FAERS Safety Report 16959414 (Version 1)
Quarter: 2019Q4

REPORT INFORMATION
  Report Type: Report from Study
  Country: CA (occurrence: CA)
  Receive Date: 20191025
  Receipt Date: 20191025
  Transmission Date: 20200122
  Serious: Yes (Other)
  Sender: FDA-Public Use
  Company Number: CA-PFIZER INC-2019453758

PATIENT
  Age: 34 Year
  Sex: Male

DRUGS (4)
  1. COSENTYX [Suspect]
     Active Substance: SECUKINUMAB
     Indication: PSORIASIS
     Dosage: 300 MG, MONTHLY
     Route: 058
  2. ACITRETIN. [Concomitant]
     Active Substance: ACITRETIN
     Dosage: 25 MG, 1X/DAY
     Route: 065
  3. COSENTYX [Suspect]
     Active Substance: SECUKINUMAB
     Indication: PSORIASIS
     Dosage: 300 MG, MONTHLY
     Route: 058
  4. METHOTREXATE SODIUM. [Suspect]
     Active Substance: METHOTREXATE SODIUM
     Dosage: 15 MG, WEEKLY
     Route: 065

REACTIONS (8)
  - Blood cholesterol abnormal [Recovering/Resolving]
  - Inappropriate schedule of product administration [Recovering/Resolving]
  - Pharyngitis streptococcal [Recovering/Resolving]
  - Snoring [Recovering/Resolving]
  - Abscess [Recovering/Resolving]
  - Peritonsillar abscess [Recovering/Resolving]
  - Nasal congestion [Recovering/Resolving]
  - Decreased immune responsiveness [Recovering/Resolving]
